FAERS Safety Report 25681113 (Version 1)
Quarter: 2025Q3

REPORT INFORMATION
  Report Type: Spontaneous
  Country: US (occurrence: US)
  Receive Date: 20250814
  Receipt Date: 20250814
  Transmission Date: 20251020
  Serious: Yes (Hospitalization, Other)
  Sender: Onesource Specialty Pharma
  Company Number: US-STRIDES ARCOLAB LIMITED-2025OS000442

PATIENT
  Age: 31 Year
  Sex: Female

DRUGS (4)
  1. AMPICILLIN [Suspect]
     Active Substance: AMPICILLIN
     Indication: Pyelonephritis
     Route: 065
  2. ROCEPHIN [Suspect]
     Active Substance: CEFTRIAXONE SODIUM
     Indication: Pyelonephritis
     Route: 065
  3. KETAMINE [Concomitant]
     Active Substance: KETAMINE
     Indication: Drug abuse
     Route: 065
  4. CIPROFLOXACIN [Concomitant]
     Active Substance: CIPROFLOXACIN
     Indication: Evidence based treatment
     Route: 065

REACTIONS (3)
  - Acute kidney injury [None]
  - Bladder obstruction [None]
  - Condition aggravated [None]
